FAERS Safety Report 6792663-0 (Version None)
Quarter: 2010Q2

REPORT INFORMATION
  Report Type: 
  Country: None (occurrence: None)
  Receive Date: 20100624
  Receipt Date: 20081029
  Transmission Date: 20101027
  Serious: No
  Sender: FDA-Public Use
  Company Number: US-PFIZER INC-2008075657

PATIENT
  Sex: Female
  Weight: 56.818 kg

DRUGS (3)
  1. XALATAN [Suspect]
     Indication: GLAUCOMA
     Dates: start: 19980101
  2. COSOPT [Concomitant]
  3. LOVASTATIN [Concomitant]
     Indication: BLOOD CHOLESTEROL ABNORMAL

REACTIONS (2)
  - EYE DISORDER [None]
  - SKIN DISCOLOURATION [None]
